FAERS Safety Report 5751732-4 (Version None)
Quarter: 2008Q2

REPORT INFORMATION
  Report Type: 
  Country: None (occurrence: None)
  Receive Date: 20080529
  Receipt Date: 20080519
  Transmission Date: 20081010
  Serious: Yes (Hospitalization)
  Sender: FDA-Public Use
  Company Number: GB-RANBAXY-2006RR-02778

PATIENT

DRUGS (3)
  1. TRAMADOL HCL [Suspect]
     Dosage: 50 MG, QID
     Route: 048
  2. ACETAMINOPHEN W/ CODEINE [Suspect]
     Dosage: 22 DF, UNK
  3. TRAMADOL HCL [Concomitant]
     Dosage: 50 MG, BID

REACTIONS (2)
  - ALANINE AMINOTRANSFERASE INCREASED [None]
  - OVERDOSE [None]
